FAERS Safety Report 23162818 (Version 6)
Quarter: 2024Q2

REPORT INFORMATION
  Report Type: Report from Study
  Country: NL (occurrence: NL)
  Receive Date: 20231109
  Receipt Date: 20240625
  Transmission Date: 20240716
  Serious: Yes (Hospitalization)
  Sender: FDA-Public Use
  Company Number: NL-ABBVIE-5488202

PATIENT
  Age: 75 Year
  Sex: Male

DRUGS (12)
  1. CARBIDOPA\LEVODOPA [Suspect]
     Active Substance: CARBIDOPA\LEVODOPA
     Indication: Parkinson^s disease
     Dosage: MD: 10.0 ML, CD: 3.8 ML/H, ED: 2.0 ML, LAST ADMIN DATE 2024, REMAINS AT 16 HOURS
     Route: 050
     Dates: start: 20240314
  2. CARBIDOPA\LEVODOPA [Suspect]
     Active Substance: CARBIDOPA\LEVODOPA
     Dosage: MD: 10.0 ML, CD: 3.8 ML/H, ED: 2.0 ML?DURATION TEXT: REMAINS AT 16 HOURS
     Route: 050
     Dates: start: 20230703, end: 20230920
  3. CARBIDOPA\LEVODOPA [Suspect]
     Active Substance: CARBIDOPA\LEVODOPA
     Dosage: MD: 10.0 ML, CD: 3.8 ML/H, ED: 2.0 ML?DURATION TEXT: REMAINS AT 16 HOURS
     Route: 050
     Dates: start: 20230920, end: 20240110
  4. CARBIDOPA\LEVODOPA [Suspect]
     Active Substance: CARBIDOPA\LEVODOPA
     Dosage: MD: 10.0 ML, CD: 3.8 ML/H, ED: 2.0 ML?REMAINS AT 16 HOURS
     Route: 050
     Dates: start: 20240110, end: 20240314
  5. CARBIDOPA\LEVODOPA [Suspect]
     Active Substance: CARBIDOPA\LEVODOPA
     Dosage: MD: 10.0 ML, CD: 4.1 ML/H, ED: 2.0 ML?DURATION TEXT: REMAINS AT 16 HOURS
     Route: 050
     Dates: start: 20230606, end: 20230703
  6. CARBIDOPA\LEVODOPA [Suspect]
     Active Substance: CARBIDOPA\LEVODOPA
     Dosage: FIRST ADMIN DATE 2024, REMAINS AT 16 HOURS
     Route: 050
  7. CARBIDOPA\LEVODOPA [Suspect]
     Active Substance: CARBIDOPA\LEVODOPA
     Dosage: MD: 15.0 ML, CD: 3.8 ML/H, ED: 2.0 ML?DURATION TEXT: REMAINS AT 16 HOURS
     Route: 050
     Dates: start: 20230524, end: 20230606
  8. CARBIDOPA\LEVODOPA [Suspect]
     Active Substance: CARBIDOPA\LEVODOPA
     Dosage: MD: 15.0 ML, CD: 4.1 ML/H, ED: 2.0 ML?DURATION TEXT: REMAINS AT 16 HOURS
     Route: 050
     Dates: start: 20230510, end: 20230524
  9. CARBIDOPA\LEVODOPA [Suspect]
     Active Substance: CARBIDOPA\LEVODOPA
     Dosage: REMAINS AT 16 HOURS
     Route: 050
     Dates: start: 20210913
  10. OMEPRAZOLE [Concomitant]
     Active Substance: DONEPEZIL HYDROCHLORIDE\OMEPRAZOLE\OMEPRAZOLE MAGNESIUM
     Indication: Antacid therapy
     Dosage: FORM STRENGTH: 20 MILLIGRAM
     Route: 065
  11. POLYETHYLENE GLYCOLS [Concomitant]
     Active Substance: POLYETHYLENE GLYCOLS
     Indication: Parkinson^s disease
     Dosage: FORM STRENGTH: 20 MG
     Route: 065
  12. TERRA-CORTRIL [Concomitant]
     Active Substance: HYDROCORTISONE ACETATE\OXYTETRACYCLINE HYDROCHLORIDE
     Indication: Product used for unknown indication
     Dosage: 10 DAYS TREATMENT, THEN 1 WEEK STOP
     Route: 003
     Dates: start: 202406

REACTIONS (21)
  - Gastroenteritis [Not Recovered/Not Resolved]
  - Freezing phenomenon [Not Recovered/Not Resolved]
  - Bradyphrenia [Not Recovered/Not Resolved]
  - On and off phenomenon [Not Recovered/Not Resolved]
  - Off label use [Not Recovered/Not Resolved]
  - Slow response to stimuli [Not Recovered/Not Resolved]
  - Dyskinesia [Not Recovered/Not Resolved]
  - Malaise [Not Recovered/Not Resolved]
  - Gastrostomy tube removal [Not Recovered/Not Resolved]
  - Salivary hypersecretion [Not Recovered/Not Resolved]
  - Initial insomnia [Not Recovered/Not Resolved]
  - Speech disorder [Not Recovered/Not Resolved]
  - Fatigue [Not Recovered/Not Resolved]
  - Nocturia [Not Recovered/Not Resolved]
  - Fibroma [Not Recovered/Not Resolved]
  - Device loosening [Recovered/Resolved]
  - Pain [Not Recovered/Not Resolved]
  - Stoma site reaction [Not Recovered/Not Resolved]
  - Stoma site discharge [Recovering/Resolving]
  - Device issue [Not Recovered/Not Resolved]
  - Device dislocation [Unknown]

NARRATIVE: CASE EVENT DATE: 20231101
